FAERS Safety Report 16941543 (Version 2)
Quarter: 2019Q4

REPORT INFORMATION
  Report Type: Spontaneous
  Country: GR (occurrence: GR)
  Receive Date: 20191021
  Receipt Date: 20191105
  Transmission Date: 20200122
  Serious: No
  Sender: FDA-Public Use
  Company Number: GR-BAUSCH-BL-2019-057999

PATIENT
  Age: 33 Year
  Sex: Female

DRUGS (4)
  1. PREDNISOLONE. [Suspect]
     Active Substance: PREDNISOLONE
     Indication: PEMPHIGUS
     Dosage: FROM 23 WEEKS TO 28 WEEKS OF GESTATION
     Route: 042
  2. PREDNISOLONE. [Suspect]
     Active Substance: PREDNISOLONE
     Dosage: FROM 29 WEEKS TO 31 WEEKS OF GESTATION
     Route: 042
  3. PREDNISOLONE. [Suspect]
     Active Substance: PREDNISOLONE
     Indication: PEMPHIGUS
     Dosage: FROM 31 WEEKS TO 34 WEEKS OF GESTATION
     Route: 048
  4. PREDNISOLONE. [Suspect]
     Active Substance: PREDNISOLONE
     Dosage: FROM 28 WEEKS TO 29 WEEKS OF GESTATION
     Route: 042

REACTIONS (1)
  - Maternal exposure during pregnancy [Unknown]
